FAERS Safety Report 6246598-2 (Version None)
Quarter: 2009Q2

REPORT INFORMATION
  Report Type: 
  Country: None (occurrence: None)
  Receive Date: 20090626
  Receipt Date: 20090612
  Transmission Date: 20091009
  Serious: Yes (Other)
  Sender: FDA-Public Use
  Company Number: FR-PFIZER INC-2009170071

PATIENT
  Age: 30 Year

DRUGS (3)
  1. DOSTINEX [Suspect]
     Indication: HYPERPROLACTINAEMIA
     Dosage: 1 DF, WEEKLY
     Route: 048
     Dates: start: 20070618
  2. DOSTINEX [Suspect]
     Indication: PITUITARY TUMOUR BENIGN
     Route: 048
  3. ANDROTARDYL [Concomitant]
     Indication: HYPOGONADISM
     Dosage: 250 MG, MONTHLY
     Route: 030
     Dates: start: 20070701, end: 20070901

REACTIONS (13)
  - AFFECTIVE DISORDER [None]
  - AGGRESSION [None]
  - EPILEPSY [None]
  - ERECTILE DYSFUNCTION [None]
  - FATIGUE [None]
  - HEADACHE [None]
  - HORMONE LEVEL ABNORMAL [None]
  - INSOMNIA [None]
  - IRRITABILITY [None]
  - LIBIDO DECREASED [None]
  - NECROSIS [None]
  - NERVOUSNESS [None]
  - WEIGHT INCREASED [None]
